FAERS Safety Report 7729501-5 (Version None)
Quarter: 2011Q3

REPORT INFORMATION
  Report Type: 
  Country: None (occurrence: None)
  Receive Date: 20110831
  Receipt Date: 20110831
  Transmission Date: 20111222
  Serious: No
  Sender: FDA-Public Use
  Company Number: None

PATIENT
  Age: 73 Year
  Sex: Male
  Weight: 101.5 kg

DRUGS (1)
  1. ADALIMUMAB [Suspect]
     Indication: ANKYLOSING SPONDYLITIS
     Dosage: 40 MG OTHER SQ
     Route: 058
     Dates: start: 20090909, end: 20110606

REACTIONS (5)
  - DIZZINESS [None]
  - PAIN IN EXTREMITY [None]
  - PAIN IN JAW [None]
  - NAUSEA [None]
  - DYSPNOEA [None]
